FAERS Safety Report 16631676 (Version 1)
Quarter: 2019Q3

REPORT INFORMATION
  Report Type: Spontaneous
  Country: US (occurrence: US)
  Receive Date: 20190725
  Receipt Date: 20190725
  Transmission Date: 20191004
  Serious: No
  Sender: FDA-Public Use
  Company Number: US-ABBVIE-12P-163-0930250-00

PATIENT
  Age: 73 Year
  Sex: Female
  Weight: 64.47 kg

DRUGS (2)
  1. SYNTHROID [Suspect]
     Active Substance: LEVOTHYROXINE SODIUM
     Indication: HYPOTHYROIDISM
     Route: 048
     Dates: start: 1985
  2. SYNTHROID [Suspect]
     Active Substance: LEVOTHYROXINE SODIUM
     Route: 048

REACTIONS (12)
  - Vision blurred [Unknown]
  - Restlessness [Not Recovered/Not Resolved]
  - Wheezing [Not Recovered/Not Resolved]
  - Insomnia [Unknown]
  - Nail ridging [Not Recovered/Not Resolved]
  - Alopecia [Not Recovered/Not Resolved]
  - Hypometabolism [Unknown]
  - Depression [Unknown]
  - Swelling face [Not Recovered/Not Resolved]
  - Breast tenderness [Not Recovered/Not Resolved]
  - Constipation [Unknown]
  - Therapeutic product effect decreased [Unknown]

NARRATIVE: CASE EVENT DATE: 201205
